FAERS Safety Report 15920552 (Version 1)
Quarter: 2019Q1

REPORT INFORMATION
  Report Type: Spontaneous
  Country: US (occurrence: US)
  Receive Date: 20190205
  Receipt Date: 20190205
  Transmission Date: 20190417
  Serious: Yes (Hospitalization, Other)
  Sender: FDA-Public Use
  Company Number: US-ASTRAZENECA-2019SE17848

PATIENT

DRUGS (18)
  1. IBRANCE [Suspect]
     Active Substance: PALBOCICLIB
     Indication: PANCREATIC CARCINOMA METASTATIC
     Route: 048
     Dates: start: 20170831
  2. GABAPENTIN. [Concomitant]
     Active Substance: GABAPENTIN
     Indication: NEUROPATHY PERIPHERAL
     Route: 048
     Dates: start: 20161118
  3. AMLODIPINE [Concomitant]
     Active Substance: AMLODIPINE BESYLATE
     Route: 048
  4. PAPAVER SOMNIFERUM [Concomitant]
     Indication: PANCREATIC CARCINOMA METASTATIC
     Dosage: 2 DROPS EVERY 4 HRS AS NEEDED
     Dates: start: 20170627
  5. NEULASTA [Concomitant]
     Active Substance: PEGFILGRASTIM
     Indication: NEUTROPENIA
     Dates: start: 20170830
  6. ENOXAPARIN [Concomitant]
     Active Substance: ENOXAPARIN
     Indication: THROMBOCYTOPENIA
     Dosage: 40MG/0.4ML 1DF DAILY
     Route: 058
     Dates: start: 20170531
  7. FLUOROURACIL. [Suspect]
     Active Substance: FLUOROURACIL
     Route: 065
  8. ATORVASTATIN [Concomitant]
     Active Substance: ATORVASTATIN
     Route: 048
  9. DEXAMETHASONE. [Concomitant]
     Active Substance: DEXAMETHASONE
     Indication: PANCREATIC CARCINOMA METASTATIC
     Route: 048
     Dates: start: 20170627
  10. GEMCITABINE [Suspect]
     Active Substance: GEMCITABINE\GEMCITABINE HYDROCHLORIDE
     Route: 065
  11. ABRAXANE [Suspect]
     Active Substance: PACLITAXEL
     Route: 065
  12. PAPAVER SOMNIFERUM [Concomitant]
     Indication: DIARRHOEA
     Dosage: 2 DROPS EVERY 4 HRS AS NEEDED
     Dates: start: 20170627
  13. DEXAMETHASONE. [Concomitant]
     Active Substance: DEXAMETHASONE
     Indication: NAUSEA
     Route: 048
     Dates: start: 20170627
  14. DIPHENOXYLATE-ATROPINE [Concomitant]
     Active Substance: ATROPINE\DIPHENOXYLATE
     Indication: DIARRHOEA
     Dosage: 1 DF AFTER EACH LOOSE STOLL NOT MORE THAN 8 DF PER DAY
     Route: 048
     Dates: start: 20170830
  15. LIDOCAINE. [Suspect]
     Active Substance: LIDOCAINE
     Indication: NAUSEA
     Dosage: 5 ML WASH AND SWALLOW THREE TIMES PER DAY
     Route: 065
     Dates: start: 20161102
  16. CHLORHEXIDINE GLUCONATE. [Concomitant]
     Active Substance: CHLORHEXIDINE GLUCONATE
     Indication: NAUSEA
     Dosage: 15ML SWISH AND SPIT THREE TIMES A DAY
     Dates: start: 20161102
  17. OMEPRAZOLE. [Suspect]
     Active Substance: OMEPRAZOLE
     Route: 048
     Dates: start: 20170705
  18. CREON [Concomitant]
     Active Substance: PANCRELIPASE AMYLASE\PANCRELIPASE LIPASE\PANCRELIPASE PROTEASE
     Indication: PANCREATIC CARCINOMA METASTATIC
     Dosage: 24000 UNIT 4DF WITH MEAL
     Route: 048
     Dates: start: 20160323

REACTIONS (17)
  - Malignant neoplasm progression [Unknown]
  - Metastases to bone [Unknown]
  - Portal vein thrombosis [Unknown]
  - Gait disturbance [Unknown]
  - Diarrhoea [Unknown]
  - Diarrhoea haemorrhagic [Unknown]
  - Platelet count decreased [Unknown]
  - Thrombocytosis [Unknown]
  - Neutropenia [Unknown]
  - Oedema [Unknown]
  - Anaemia of malignant disease [Unknown]
  - Neuropathy peripheral [Unknown]
  - Pleural effusion [Unknown]
  - Weight decreased [Unknown]
  - Ascites [Unknown]
  - Thrombocytopenia [Unknown]
  - Oedema peripheral [Unknown]

NARRATIVE: CASE EVENT DATE: 20161118
